FAERS Safety Report 4549073-6 (Version None)
Quarter: 2004Q4

REPORT INFORMATION
  Report Type: 
  Country: None (occurrence: None)
  Receive Date: 20041227
  Receipt Date: 20040927
  Transmission Date: 20050328
  Serious: No
  Sender: FDA-Public Use
  Company Number: 04P-163-0263904-00

PATIENT
  Age: 73 Year
  Sex: Female
  Weight: 64.4108 kg

DRUGS (8)
  1. HUMIRA [Suspect]
     Indication: RHEUMATOID ARTHRITIS
     Dosage: 40 MG, 1 IN 2 WK, SUBCUTANEOUS
     Route: 058
     Dates: start: 20030601
  2. COUMADIN [Concomitant]
  3. ROFECOXIB [Concomitant]
  4. DIGOXIN [Concomitant]
  5. FOLIC ACID [Concomitant]
  6. PREDNISONE [Concomitant]
  7. LEXAPRO [Concomitant]
  8. ZOLPIDEM TARTRATE [Concomitant]

REACTIONS (6)
  - GASTRITIS [None]
  - LOCALISED INFECTION [None]
  - PNEUMONIA [None]
  - SINUSITIS [None]
  - TINEA PEDIS [None]
  - URINARY TRACT INFECTION [None]
